FAERS Safety Report 7705512-0 (Version None)
Quarter: 2011Q3

REPORT INFORMATION
  Report Type: 
  Country: None (occurrence: None)
  Receive Date: 20110818
  Receipt Date: 20110805
  Transmission Date: 20111222
  Serious: Yes (Life-Threatening, Hospitalization)
  Sender: FDA-Public Use
  Company Number: AUR-APL-2011-03992

PATIENT
  Age: 31 Year
  Sex: Female

DRUGS (3)
  1. MESALAMINE [Concomitant]
  2. RAMIPRIL [Suspect]
     Indication: HYPERTENSION
     Dosage: 10 MG (10 MG, 1 IN 1 D)
  3. BENDROFLUAZIDE (BENDROFLUMETHIAZIDE) [Suspect]
     Indication: HYPERTENSION
     Dosage: 2.5 MG , 1600 MG (800 MG, 2 IN 1 D)

REACTIONS (15)
  - CONVULSION [None]
  - CONFUSIONAL STATE [None]
  - PARAESTHESIA [None]
  - HYPOKALAEMIA [None]
  - ASTHENIA [None]
  - BLOOD PRESSURE ABNORMAL [None]
  - HYPONATRAEMIA [None]
  - VENTRICULAR EXTRASYSTOLES [None]
  - PRESYNCOPE [None]
  - URINE SODIUM ABNORMAL [None]
  - PALPITATIONS [None]
  - VOMITING [None]
  - WATER INTOXICATION [None]
  - CARDIAC ARREST [None]
  - BLOOD OSMOLARITY DECREASED [None]
